FAERS Safety Report 21040985 (Version 1)
Quarter: 2022Q3

REPORT INFORMATION
  Report Type: Spontaneous
  Country: MY (occurrence: MY)
  Receive Date: 20220704
  Receipt Date: 20220704
  Transmission Date: 20221027
  Serious: Yes (Other)
  Sender: FDA-Public Use
  Company Number: MY-NOVARTISPH-NVSC2022MY150928

PATIENT
  Age: 47 Year
  Sex: Male

DRUGS (1)
  1. TEGRETOL [Suspect]
     Active Substance: CARBAMAZEPINE
     Indication: Partial seizures
     Dosage: 200 MG, Q12H
     Route: 048

REACTIONS (3)
  - Hypernatraemia [Recovering/Resolving]
  - Rash pruritic [Recovering/Resolving]
  - Urticaria [Recovering/Resolving]
